FAERS Safety Report 12983625 (Version 2)
Quarter: 2017Q1

REPORT INFORMATION
  Report Type: Spontaneous
  Country: NL (occurrence: NL)
  Receive Date: 20161129
  Receipt Date: 20170126
  Transmission Date: 20170428
  Serious: Yes (Hospitalization)
  Sender: FDA-Public Use
  Company Number: NL-TEVA-714518ISR

PATIENT
  Age: 62 Year
  Sex: Male

DRUGS (2)
  1. CHLORAMPHENICOL [Suspect]
     Active Substance: CHLORAMPHENICOL
     Indication: UROSEPSIS
     Dosage: 3000 MILLIGRAM DAILY;
     Route: 065
  2. TACROLIMUS. [Interacting]
     Active Substance: TACROLIMUS
     Dosage: 4 MILLIGRAM DAILY;
     Route: 065

REACTIONS (8)
  - Drug interaction [Recovering/Resolving]
  - Dizziness [Unknown]
  - Vomiting [Unknown]
  - Abdominal pain [Unknown]
  - Nephropathy toxic [Recovered/Resolved]
  - Nausea [Unknown]
  - Diarrhoea [Unknown]
  - Thrombocytopenia [Unknown]
